FAERS Safety Report 22525091 (Version 1)
Quarter: 2023Q2

REPORT INFORMATION
  Report Type: Spontaneous
  Country: US (occurrence: US)
  Receive Date: 20230606
  Receipt Date: 20230606
  Transmission Date: 20230722
  Serious: No
  Sender: FDA-Public Use
  Company Number: US-BAXTER-2023BAX023153

PATIENT

DRUGS (1)
  1. HEPARIN SODIUM [Suspect]
     Active Substance: HEPARIN SODIUM
     Route: 041

REACTIONS (3)
  - Vascular access site haemorrhage [Unknown]
  - Activated partial thromboplastin time prolonged [Unknown]
  - Device issue [Unknown]

NARRATIVE: CASE EVENT DATE: 20230413
